FAERS Safety Report 4709597-5 (Version None)
Quarter: 2005Q3

REPORT INFORMATION
  Report Type: 
  Country: None (occurrence: None)
  Receive Date: 20050707
  Receipt Date: 20050624
  Transmission Date: 20060218
  Serious: Yes (Death)
  Sender: FDA-Public Use
  Company Number: 212766

PATIENT
  Sex: Female

DRUGS (1)
  1. RITUXAN [Suspect]
     Dosage: INTRAVENOUS
     Dates: start: 20040401

REACTIONS (2)
  - MYOCARDIAL INFARCTION [None]
  - SEPSIS [None]
